FAERS Safety Report 7915576-7 (Version None)
Quarter: 2011Q4

REPORT INFORMATION
  Report Type: 
  Country: None (occurrence: None)
  Receive Date: 20111115
  Receipt Date: 20110816
  Transmission Date: 20120403
  Serious: No
  Sender: FDA-Public Use
  Company Number: US-BRISTOL-MYERS SQUIBB COMPANY-15941644

PATIENT
  Age: 63 Year
  Sex: Female

DRUGS (4)
  1. NEXIUM [Concomitant]
  2. FENTANYL-100 [Concomitant]
  3. YERVOY [Suspect]
     Dosage: EXP DATE:AUG2013 THERAPY DATES:30UN11,1AUG11 DOSE:235MG(47ML) ADMIN OVER:30-40MIN
     Dates: start: 20110610
  4. IMODIUM [Concomitant]

REACTIONS (10)
  - RASH [None]
  - PYREXIA [None]
  - ERYTHEMA [None]
  - CHILLS [None]
  - MEDICATION ERROR [None]
  - GASTROINTESTINAL DISORDER [None]
  - LIVER FUNCTION TEST ABNORMAL [None]
  - ABDOMINAL PAIN [None]
  - PRURITUS [None]
  - VOMITING [None]
